FAERS Safety Report 24571013 (Version 1)
Quarter: 2024Q4

REPORT INFORMATION
  Report Type: Report from Study
  Country: NL (occurrence: NL)
  Receive Date: 20241101
  Receipt Date: 20241101
  Transmission Date: 20250115
  Serious: Yes (Death)
  Sender: ABBVIE
  Company Number: NL-ABBVIE-5985901

PATIENT
  Age: 64 Year
  Sex: Male

DRUGS (13)
  1. CARBIDOPA\LEVODOPA [Suspect]
     Active Substance: CARBIDOPA\LEVODOPA
     Indication: Parkinson^s disease
     Dosage: MD: 15.0ML, CD: 5.0ML/H, ED: 6.0ML?DURATION TEXT: REMAINS AT 16 HOURS
     Route: 050
     Dates: start: 20240917, end: 20241019
  2. CARBIDOPA\LEVODOPA [Suspect]
     Active Substance: CARBIDOPA\LEVODOPA
     Dosage: MD: 15.0ML, CD: 5.0ML/H, ED: 6.0ML?DURATION TEXT: REMAINS AT 16 HOURS
     Route: 050
     Dates: start: 20240424, end: 20240917
  3. CALCI CHEW [Concomitant]
     Indication: Vitamin D
     Route: 048
     Dates: start: 20201001
  4. POLYETHYLENE GLYCOLS [Concomitant]
     Active Substance: POLYETHYLENE GLYCOLS
     Indication: Constipation
     Route: 048
     Dates: start: 20190501
  5. RIVASTIGMINE [Concomitant]
     Active Substance: RIVASTIGMINE
     Indication: Cognitive disorder
     Dosage: 9,5MG/24 HOURS
     Dates: start: 20220630
  6. ENTACAPONE [Concomitant]
     Active Substance: ENTACAPONE
     Indication: Parkinson^s disease
     Dosage: TIME INTERVAL: 0.16666667 DAYS: FORM STRENGTH: 200?FORM STRENGTH UNITS: MILLIGRAM
     Route: 048
     Dates: start: 20191101
  7. BENSERAZIDE HYDROCHLORIDE\LEVODOPA [Concomitant]
     Active Substance: BENSERAZIDE HYDROCHLORIDE\LEVODOPA
     Indication: Parkinson^s disease
     Dosage: FORM STRENGTH: 125 MG
     Route: 048
     Dates: start: 20210209
  8. ATORVASTATIN [Concomitant]
     Active Substance: ATORVASTATIN
     Indication: Blood cholesterol
     Dosage: FORM STRENGTH: 40 MG
     Route: 048
     Dates: start: 20190501
  9. Levo/carb [Concomitant]
     Indication: Parkinson^s disease
     Dosage: FORM STRENGTH: 125 MG
     Route: 048
     Dates: start: 20220820
  10. Levo/carb [Concomitant]
     Indication: Parkinson^s disease
     Dosage: TIME INTERVAL: 0.33333333 DAYS: FORM STRENGTH: 125 MG ?LAT ADMINE DATE 2019?FREQUENCY TEXT: 3 TIM...
     Route: 048
     Dates: start: 20190513
  11. Levo/carb [Concomitant]
     Indication: Parkinson^s disease
     Dosage: LAST ADMIN DATE WAS 2019?FORM STRENGTH: 62.5 MG
     Route: 048
     Dates: start: 20190617
  12. CLOZAPINE [Concomitant]
     Active Substance: CLOZAPINE
     Indication: Delusion
     Dosage: FORM STRENGTH: 6.25 MG
     Route: 048
     Dates: start: 20200701
  13. FLORINEF ACETATE [Concomitant]
     Active Substance: FLUDROCORTISONE ACETATE
     Indication: Hypotension
     Route: 048
     Dates: start: 20220726

REACTIONS (2)
  - Hypophagia [Fatal]
  - Fall [Fatal]

NARRATIVE: CASE EVENT DATE: 20240101
